FAERS Safety Report 4659359-2 (Version None)
Quarter: 2005Q2

REPORT INFORMATION
  Report Type: 
  Country: None (occurrence: None)
  Receive Date: 20050510
  Receipt Date: 20050427
  Transmission Date: 20051028
  Serious: Yes (Life-Threatening, Hospitalization)
  Sender: FDA-Public Use
  Company Number: 2005AL001597

PATIENT
  Age: 32 Year
  Sex: Female

DRUGS (7)
  1. SERAX [Suspect]
     Dosage: SEE IMAGE, PO
     Route: 048
     Dates: end: 20050124
  2. SERAX [Suspect]
     Dosage: SEE IMAGE, PO
     Route: 048
     Dates: start: 20050125, end: 20050125
  3. ALCOHOL [Suspect]
     Dosage: X1
     Dates: start: 20050125, end: 20050125
  4. ANAFRANIL [Suspect]
     Dosage: SEE IMAGE
     Dates: end: 20050124
  5. ANAFRANIL [Suspect]
     Dosage: SEE IMAGE
     Dates: start: 20050125, end: 20050125
  6. LARGACTIL [Suspect]
     Dosage: 1250 MG; XL; PO
     Route: 048
     Dates: start: 20050125, end: 20050125
  7. NORSET [Suspect]
     Dosage: 300 MG XL PO
     Route: 048
     Dates: start: 20050125, end: 20050125

REACTIONS (8)
  - BLOOD ALCOHOL INCREASED [None]
  - BLOOD GLUCOSE DECREASED [None]
  - COMA [None]
  - DRUG EXPOSURE DURING PREGNANCY [None]
  - HYPOTENSION [None]
  - INTENTIONAL MISUSE [None]
  - OXYGEN SATURATION DECREASED [None]
  - SUICIDE ATTEMPT [None]
